FAERS Safety Report 22257115 (Version 5)
Quarter: 2024Q2

REPORT INFORMATION
  Report Type: Report from Study
  Country: CL (occurrence: CL)
  Receive Date: 20230427
  Receipt Date: 20240423
  Transmission Date: 20240716
  Serious: Yes (Hospitalization, Other)
  Sender: FDA-Public Use
  Company Number: CL-BEIGENE USA INC-BGN-2022-010633

PATIENT

DRUGS (2)
  1. BRUKINSA [Suspect]
     Active Substance: ZANUBRUTINIB
     Indication: Waldenstrom^s macroglobulinaemia
     Dosage: 80 MILLIGRAM, Q12H
     Route: 048
     Dates: start: 20220920, end: 20230418
  2. RITUXIMAB [Concomitant]
     Active Substance: RITUXIMAB

REACTIONS (6)
  - Blood immunoglobulin M increased [Unknown]
  - Drug effect less than expected [Unknown]
  - Disease progression [Unknown]
  - Somnolence [Not Recovered/Not Resolved]
  - Drug ineffective [Unknown]
  - Underdose [Unknown]

NARRATIVE: CASE EVENT DATE: 20221212
